FAERS Safety Report 17044467 (Version 5)
Quarter: 2020Q1

REPORT INFORMATION
  Report Type: Report from Study
  Country: US (occurrence: US)
  Receive Date: 20191118
  Receipt Date: 20200319
  Transmission Date: 20200409
  Serious: Yes (Other)
  Sender: FDA-Public Use
  Company Number: US-TAKEDA-2019TUS065279

PATIENT
  Sex: Female
  Weight: 53.52 kg

DRUGS (1)
  1. BRIGATINIB [Suspect]
     Active Substance: BRIGATINIB
     Indication: NON-SMALL CELL LUNG CANCER
     Dosage: UNK
     Route: 065

REACTIONS (27)
  - Dysphagia [Not Recovered/Not Resolved]
  - Oropharyngeal pain [Recovered/Resolved]
  - Pain [Not Recovered/Not Resolved]
  - Mobility decreased [Unknown]
  - Decreased appetite [Unknown]
  - Nausea [Not Recovered/Not Resolved]
  - Depression [Unknown]
  - Non-small cell lung cancer metastatic [Recovered/Resolved]
  - Gastrointestinal disorder [Unknown]
  - Sleep disorder [Unknown]
  - Gait disturbance [Unknown]
  - Glossodynia [Unknown]
  - Paraesthesia [Not Recovered/Not Resolved]
  - Fatigue [Not Recovered/Not Resolved]
  - Dyspnoea [Not Recovered/Not Resolved]
  - Pain in extremity [Unknown]
  - Chest pain [Recovered/Resolved]
  - Alopecia [Unknown]
  - Dry mouth [Not Recovered/Not Resolved]
  - Memory impairment [Not Recovered/Not Resolved]
  - Depressed mood [Unknown]
  - Somnolence [Not Recovered/Not Resolved]
  - Cough [Unknown]
  - Musculoskeletal pain [Unknown]
  - Oral pain [Unknown]
  - Emotional distress [Not Recovered/Not Resolved]
  - Constipation [Recovered/Resolved]
